FAERS Safety Report 16911652 (Version 3)
Quarter: 2019Q4

REPORT INFORMATION
  Report Type: Spontaneous
  Country: FR (occurrence: FR)
  Receive Date: 20191013
  Receipt Date: 20191224
  Transmission Date: 20200122
  Serious: Yes (Death, Life-Threatening, Other)
  Sender: FDA-Public Use
  Company Number: FR-AUROBINDO-AUR-APL-2019-065388

PATIENT
  Age: 54 Year
  Sex: Female
  Weight: 46 kg

DRUGS (5)
  1. DIFFU K [Suspect]
     Active Substance: POTASSIUM CHLORIDE
     Indication: PRODUCT USED FOR UNKNOWN INDICATION
     Dosage: 13 DOSAGE FORM (13 CAPSULES OF 600MG IN A SINGLE DOSE)
     Route: 048
     Dates: start: 20190809
  2. MIANSERIN FILM-COATED TABLET [Suspect]
     Active Substance: MIANSERIN
     Indication: PRODUCT USED FOR UNKNOWN INDICATION
     Dosage: 180 MILLIGRAM (3 60 MG TABLETS IN A SINGLE DOSE)
     Route: 048
     Dates: start: 20190809
  3. GABAPENTINE CAPSULE, HARD [Suspect]
     Active Substance: GABAPENTIN
     Indication: PRODUCT USED FOR UNKNOWN INDICATION
     Dosage: 6000 MILLIGRAM (20 CAPSULES OF 300MG IN A SINGLE DOSE)
     Route: 048
     Dates: start: 20190809
  4. ZOLPIDEM [Suspect]
     Active Substance: ZOLPIDEM TARTRATE
     Indication: PRODUCT USED FOR UNKNOWN INDICATION
     Dosage: 140 MILLIGRAM IN TOTAL (14 TABLETS OF 10 MG IN A SINGLE DOSE)
     Route: 048
     Dates: start: 20190809
  5. DESLORATADINE FILM-COATED TABLET [Suspect]
     Active Substance: DESLORATADINE
     Indication: PRODUCT USED FOR UNKNOWN INDICATION
     Dosage: 65 MILLIGRAM IN TOTAL (13 TABLETS OF 5MG IN A SINGLE DOSE)
     Route: 048
     Dates: start: 20190809

REACTIONS (6)
  - Arrhythmia [Fatal]
  - Disseminated intravascular coagulation [Fatal]
  - Cardio-respiratory arrest [Fatal]
  - Toxicity to various agents [Fatal]
  - Respiratory disorder [Fatal]
  - Hyperkalaemia [Fatal]

NARRATIVE: CASE EVENT DATE: 20190809
